FAERS Safety Report 13198555 (Version 5)
Quarter: 2017Q1

REPORT INFORMATION
  Report Type: Spontaneous
  Country: BR (occurrence: BR)
  Receive Date: 20170208
  Receipt Date: 20170313
  Transmission Date: 20170428
  Serious: Yes (Death, Hospitalization, Other)
  Sender: FDA-Public Use
  Company Number: BR-AMGEN-BRASP2017020117

PATIENT
  Age: 51 Year
  Sex: Female
  Weight: 64 kg

DRUGS (21)
  1. KYPROLIS [Suspect]
     Active Substance: CARFILZOMIB
     Indication: PLASMA CELL MYELOMA
     Dosage: 92.51 MG, QD CYCLE 2
     Route: 042
     Dates: start: 20161114, end: 20161122
  2. CEFEPIME [Concomitant]
     Active Substance: CEFEPIME HYDROCHLORIDE
     Dosage: 1 G, 1 AMPOULE EACH 8 HOURS
     Route: 042
     Dates: start: 20161120, end: 20161207
  3. NYSTATIN. [Concomitant]
     Active Substance: NYSTATIN
     Dosage: 300000 UNIT, UNK
     Dates: start: 20161119, end: 20161126
  4. TRAMADOL. [Concomitant]
     Active Substance: TRAMADOL
     Dosage: 1.5 G, UNK
     Route: 042
     Dates: start: 20161120, end: 20161201
  5. COZAAR [Concomitant]
     Active Substance: LOSARTAN POTASSIUM
     Dosage: 50 MG, UNK
     Route: 048
  6. LORAX [Concomitant]
     Active Substance: LORAZEPAM
     Dosage: 2 MG, UNK
     Route: 048
     Dates: start: 20161110, end: 20161216
  7. VALTREX [Concomitant]
     Active Substance: VALACYCLOVIR HYDROCHLORIDE
     Dosage: 500 MG, EACH 12 HOUR
     Route: 048
     Dates: start: 20161118, end: 20161127
  8. DIGESAN [Concomitant]
     Active Substance: BROMOPRIDE
     Dosage: 20 MG, UNK
     Route: 048
     Dates: start: 20161119, end: 20161210
  9. NOVALGIN [Concomitant]
     Active Substance: METAMIZOLE SODIUM
     Dosage: 500 MG/ML, AMP 2 ML, ONE AMPOULE
     Route: 048
     Dates: start: 20161120, end: 20161217
  10. DIMORF [Concomitant]
     Active Substance: MORPHINE SULFATE
     Dosage: UNK
  11. ADRENALINA [Concomitant]
     Active Substance: EPINEPHRINE
     Dosage: UNK
  12. ATENOLOL. [Concomitant]
     Active Substance: ATENOLOL
     Dosage: 25 MG, QD
     Route: 048
     Dates: start: 20161105, end: 20161117
  13. CORTISONAL [Concomitant]
     Dosage: 100 MG, UNK
     Route: 042
     Dates: start: 20161120, end: 20161204
  14. PANTOZOL [Concomitant]
     Active Substance: PANTOPRAZOLE SODIUM
     Dosage: 40 MG, 1 AMPOULE DAILY
     Route: 042
     Dates: start: 20161123, end: 20161217
  15. KYPROLIS [Suspect]
     Active Substance: CARFILZOMIB
     Dosage: 92.51 MG, UNK
     Route: 042
     Dates: start: 20161123, end: 20161123
  16. ENDOFOLIN [Concomitant]
     Active Substance: FOLIC ACID
     Dosage: 5 MG, QD, ENTERL CATHETER
     Dates: start: 20161118, end: 20161215
  17. LOSEC [Concomitant]
     Active Substance: OMEPRAZOLE
     Dosage: 20 MG, UNK
     Route: 048
     Dates: start: 20161104, end: 20161217
  18. LASIX [Concomitant]
     Active Substance: FUROSEMIDE
     Dosage: 10 MG/ML, AMP 2 ML, ONE AMPOULE EACH 4 HOUR
     Route: 042
     Dates: start: 20161120, end: 20161215
  19. VONAU [Concomitant]
     Active Substance: ONDANSETRON HYDROCHLORIDE
     Dosage: 4 MG, TABLET EACH 8 HOUR
     Dates: start: 20161120, end: 20161204
  20. PLASIL [Concomitant]
     Active Substance: METOCLOPRAMIDE HYDROCHLORIDE
     Dosage: UNK
  21. CLEXANE [Concomitant]
     Active Substance: ENOXAPARIN SODIUM
     Dosage: 1 UNK, QD
     Route: 058
     Dates: start: 20161108, end: 20161204

REACTIONS (6)
  - Acute pulmonary oedema [Fatal]
  - Generalised oedema [Unknown]
  - Anuria [Unknown]
  - Renal impairment [Unknown]
  - Hypoxic-ischaemic encephalopathy [Fatal]
  - Cardio-respiratory arrest [Fatal]

NARRATIVE: CASE EVENT DATE: 20161124
